FAERS Safety Report 17885082 (Version 1)
Quarter: 2020Q2

REPORT INFORMATION
  Report Type: Spontaneous
  Country: US (occurrence: US)
  Receive Date: 20200611
  Receipt Date: 20200611
  Transmission Date: 20200714
  Serious: No
  Sender: FDA-Public Use
  Company Number: US-SA-2020SA148929

PATIENT

DRUGS (11)
  1. DUPIXENT [Suspect]
     Active Substance: DUPILUMAB
     Indication: PRODUCT USED FOR UNKNOWN INDICATION
     Dosage: 600 MG, 1X
     Route: 058
     Dates: start: 202005, end: 202005
  2. DICLOFENAC SODIUM. [Concomitant]
     Active Substance: DICLOFENAC SODIUM
  3. LATANOPROST. [Concomitant]
     Active Substance: LATANOPROST
     Dosage: UNK
  4. METHOTREXATE SODIUM. [Concomitant]
     Active Substance: METHOTREXATE SODIUM
  5. TACROLIMUS. [Concomitant]
     Active Substance: TACROLIMUS
  6. ACETAMINOPHEN AND CODEINE [Concomitant]
     Active Substance: ACETAMINOPHEN\CODEINE PHOSPHATE
  7. DOXEPIN HCL [Concomitant]
     Active Substance: DOXEPIN HYDROCHLORIDE
     Dosage: UNK
  8. DUPIXENT [Suspect]
     Active Substance: DUPILUMAB
     Dosage: UNK
     Dates: start: 2020
  9. FOLIC ACID. [Concomitant]
     Active Substance: FOLIC ACID
  10. PREDNISONE [PREDNISONE ACETATE] [Concomitant]
     Active Substance: PREDNISONE ACETATE
     Dosage: UNK
  11. XELJANZ XR [Concomitant]
     Active Substance: TOFACITINIB CITRATE

REACTIONS (2)
  - Eye disorder [Unknown]
  - Headache [Unknown]

NARRATIVE: CASE EVENT DATE: 2020
